FAERS Safety Report 20881657 (Version 2)
Quarter: 2022Q2

REPORT INFORMATION
  Report Type: Report from Study
  Country: FR (occurrence: FR)
  Receive Date: 20220527
  Receipt Date: 20220622
  Transmission Date: 20220721
  Serious: Yes (Life-Threatening, Other)
  Sender: FDA-Public Use
  Company Number: FR-SA-SAC20220517000077

PATIENT
  Age: 56 Year
  Sex: Female
  Weight: 84 kg

DRUGS (12)
  1. CARFILZOMIB [Suspect]
     Active Substance: CARFILZOMIB
     Indication: Plasma cell myeloma
     Dosage: UNK
     Route: 065
     Dates: start: 20220531
  2. CARFILZOMIB [Suspect]
     Active Substance: CARFILZOMIB
     Dosage: 68 MILLIGRAM
     Route: 065
     Dates: start: 20220428, end: 20220428
  3. CARFILZOMIB [Suspect]
     Active Substance: CARFILZOMIB
     Dosage: 68 MILLIGRAM
     Route: 065
     Dates: start: 20200928, end: 20220428
  4. POMALIDOMIDE [Suspect]
     Active Substance: POMALIDOMIDE
     Indication: Plasma cell myeloma
     Dosage: UNK
     Route: 065
     Dates: start: 20220504, end: 20220504
  5. POMALIDOMIDE [Suspect]
     Active Substance: POMALIDOMIDE
     Dosage: UNK
     Route: 065
     Dates: start: 20200928, end: 20200928
  6. ISATUXIMAB [Suspect]
     Active Substance: ISATUXIMAB
     Indication: Plasma cell myeloma
     Dosage: 880 MILLIGRAM
     Route: 065
     Dates: start: 20200928, end: 20220428
  7. ISATUXIMAB [Suspect]
     Active Substance: ISATUXIMAB
     Dosage: 880 MILLIGRAM
     Route: 065
     Dates: start: 20220428, end: 20220428
  8. ISATUXIMAB [Suspect]
     Active Substance: ISATUXIMAB
     Dosage: UNK
     Route: 065
     Dates: start: 20220531
  9. LANSOPRAZOLE [Concomitant]
     Active Substance: LANSOPRAZOLE
     Dosage: 30 MILLIGRAM, QD
  10. ELIQUIS [Concomitant]
     Active Substance: APIXABAN
     Dosage: UNK
  11. BACTRIM [Concomitant]
     Active Substance: SULFAMETHOXAZOLE\TRIMETHOPRIM
     Dosage: UNK
  12. REPAGLINIDE [Concomitant]
     Active Substance: REPAGLINIDE
     Dosage: 2 MILLIGRAM, QD

REACTIONS (1)
  - Neutrophil count decreased [Recovered/Resolved]

NARRATIVE: CASE EVENT DATE: 20220511
